FAERS Safety Report 15937495 (Version 2)
Quarter: 2019Q1

REPORT INFORMATION
  Report Type: Spontaneous
  Country: US (occurrence: US)
  Receive Date: 20190208
  Receipt Date: 20190219
  Transmission Date: 20190417
  Serious: Yes (Other)
  Sender: FDA-Public Use
  Company Number: US-ASTRAZENECA-2018SF21034

PATIENT
  Sex: Female

DRUGS (38)
  1. PRILOSEC [Suspect]
     Active Substance: OMEPRAZOLE MAGNESIUM
     Dosage: 40.0MG UNKNOWN
     Route: 048
     Dates: start: 20100129, end: 20150107
  2. IBUPROFEN. [Concomitant]
     Active Substance: IBUPROFEN
  3. AMBIEN [Concomitant]
     Active Substance: ZOLPIDEM TARTRATE
  4. ZOLPIDEM [Concomitant]
     Active Substance: ZOLPIDEM\ZOLPIDEM TARTRATE
  5. SEROQUEL [Concomitant]
     Active Substance: QUETIAPINE FUMARATE
  6. AMLODIPINE BESYLATE. [Concomitant]
     Active Substance: AMLODIPINE BESYLATE
  7. CLONIDINE. [Concomitant]
     Active Substance: CLONIDINE
  8. CARVEDILOL. [Concomitant]
     Active Substance: CARVEDILOL
  9. PROTONIX [Suspect]
     Active Substance: PANTOPRAZOLE SODIUM
     Route: 065
     Dates: start: 20091209, end: 20140101
  10. PROTONIX [Suspect]
     Active Substance: PANTOPRAZOLE SODIUM
     Route: 065
     Dates: start: 20110514
  11. DEXILANT [Suspect]
     Active Substance: DEXLANSOPRAZOLE
     Dosage: 60.0MG UNKNOWN
     Route: 065
     Dates: start: 20110610
  12. PROMETHAZINE [Concomitant]
     Active Substance: PROMETHAZINE\PROMETHAZINE HYDROCHLORIDE
  13. LIDODERM [Concomitant]
     Active Substance: LIDOCAINE
  14. ALPRAZOLAM. [Concomitant]
     Active Substance: ALPRAZOLAM
  15. FENTANYL. [Concomitant]
     Active Substance: FENTANYL
  16. CIPROFLOXACIN. [Concomitant]
     Active Substance: CIPROFLOXACIN
  17. HYDROCHLOROTHIAZIDE. [Concomitant]
     Active Substance: HYDROCHLOROTHIAZIDE
  18. CARISOPRODOL. [Concomitant]
     Active Substance: CARISOPRODOL
  19. CYCLOBENZAPRINE. [Concomitant]
     Active Substance: CYCLOBENZAPRINE
  20. CARAFATE [Concomitant]
     Active Substance: SUCRALFATE
  21. NEXIUM [Suspect]
     Active Substance: ESOMEPRAZOLE MAGNESIUM
     Route: 048
     Dates: start: 20100201
  22. HYDROCODONE BITARTRATE AND ACETAMINOPHEN [Concomitant]
     Active Substance: ACETAMINOPHEN\HYDROCODONE BITARTRATE
  23. NEXIUM 24HR [Suspect]
     Active Substance: ESOMEPRAZOLE MAGNESIUM
     Route: 048
     Dates: start: 20100129, end: 20150107
  24. METRONIDAZOLE. [Concomitant]
     Active Substance: METRONIDAZOLE
  25. FUROSEMIDE. [Concomitant]
     Active Substance: FUROSEMIDE
  26. OXYCONTIN [Concomitant]
     Active Substance: OXYCODONE HYDROCHLORIDE
  27. NIFEDIPINE. [Concomitant]
     Active Substance: NIFEDIPINE
  28. AZITHROMYCIN ANHYDROUS. [Concomitant]
     Active Substance: AZITHROMYCIN ANHYDROUS
  29. MORPHINE SULPHATE [Concomitant]
     Active Substance: MORPHINE SULFATE
  30. LOMOTIL [Concomitant]
     Active Substance: ATROPINE SULFATE\DIPHENOXYLATE HYDROCHLORIDE
  31. NEXIUM [Suspect]
     Active Substance: ESOMEPRAZOLE MAGNESIUM
     Route: 048
     Dates: start: 20091209, end: 20140101
  32. DEXILANT [Suspect]
     Active Substance: DEXLANSOPRAZOLE
     Route: 065
     Dates: start: 20100129, end: 20150107
  33. TRAZODONE [Concomitant]
     Active Substance: TRAZODONE HYDROCHLORIDE
  34. SERTRALINE [Concomitant]
     Active Substance: SERTRALINE HYDROCHLORIDE
  35. FLEXERIL [Concomitant]
     Active Substance: CYCLOBENZAPRINE HYDROCHLORIDE
  36. VICODIN [Concomitant]
     Active Substance: ACETAMINOPHEN\HYDROCODONE BITARTRATE
  37. TEKTURNA [Concomitant]
     Active Substance: ALISKIREN HEMIFUMARATE
  38. AMITRIPTYLINE [Concomitant]
     Active Substance: AMITRIPTYLINE

REACTIONS (3)
  - Acute kidney injury [Unknown]
  - Renal failure [Unknown]
  - Chronic kidney disease [Unknown]
